FAERS Safety Report 7797094-2 (Version None)
Quarter: 2011Q4

REPORT INFORMATION
  Report Type: 
  Country: None (occurrence: None)
  Receive Date: 20111005
  Receipt Date: 20111004
  Transmission Date: 20120403
  Serious: Yes (Hospitalization)
  Sender: FDA-Public Use
  Company Number: IT-SANOFI-AVENTIS-2011SA064703

PATIENT
  Age: 53 Year
  Sex: Male

DRUGS (5)
  1. CANDESARTAN CILEXETIL [Concomitant]
  2. ELOXATIN [Suspect]
     Route: 041
     Dates: start: 20110114, end: 20110114
  3. FLUOROURACIL [Suspect]
     Route: 042
     Dates: start: 20110114, end: 20110114
  4. LEDERFOLIN [Concomitant]
  5. AMLODIPINE BESYLATE [Concomitant]

REACTIONS (2)
  - HAEMATEMESIS [None]
  - OFF LABEL USE [None]
